FAERS Safety Report 7067499-6 (Version None)
Quarter: 2011Q1

REPORT INFORMATION
  Report Type: 
  Country: None (occurrence: None)
  Receive Date: 20101005
  Receipt Date: 20100922
  Transmission Date: 20110831
  Serious: Yes (Hospitalization, Other)
  Sender: FDA-Public Use
  Company Number: AEUSA201000125

PATIENT
  Age: 71 Year
  Sex: Male
  Weight: 112.4921 kg

DRUGS (12)
  1. M.V.I. [Concomitant]
  2. ULTRAM [Concomitant]
  3. GAMUNEX [Suspect]
     Indication: CHRONIC INFLAMMATORY DEMYELINATING POLYRADICULONEUROPATHY
     Dosage: IV
     Route: 042
     Dates: start: 20100317, end: 20100527
  4. CELLCEPT [Concomitant]
  5. LYRICA [Concomitant]
  6. CARIMUNE [Suspect]
     Indication: CHRONIC INFLAMMATORY DEMYELINATING POLYRADICULONEUROPATHY
     Dosage: 0.4 GM/KG; QD;
     Dates: end: 20100101
  7. VESICARE [Concomitant]
  8. GAMUNEX [Suspect]
  9. VIGAMOX [Concomitant]
  10. PREDNISONE [Concomitant]
  11. FESOTERODINE [Suspect]
  12. PREDNISOLONE ACETATE [Concomitant]

REACTIONS (14)
  - BLOOD GLUCOSE INCREASED [None]
  - DRUG EFFECT DECREASED [None]
  - ELECTROCARDIOGRAM ABNORMAL [None]
  - PALPITATIONS [None]
  - LOSS OF CONSCIOUSNESS [None]
  - MOBILITY DECREASED [None]
  - ASTHENIA [None]
  - HYPERHIDROSIS [None]
  - TREMOR [None]
  - HYPOAESTHESIA ORAL [None]
  - BUNDLE BRANCH BLOCK LEFT [None]
  - FALL [None]
  - HYPERTENSION [None]
  - SYNCOPE [None]
